FAERS Safety Report 8175306-3 (Version None)
Quarter: 2012Q1

REPORT INFORMATION
  Report Type: 
  Country: None (occurrence: None)
  Receive Date: 20120229
  Receipt Date: 20120222
  Transmission Date: 20120608
  Serious: Yes (Other)
  Sender: FDA-Public Use
  Company Number: PHHY2012EC017155

PATIENT
  Sex: Female

DRUGS (1)
  1. DIOVAN [Suspect]
     Indication: HYPERTENSION
     Dosage: 0.5 DF (320 MG), BID
     Route: 048
     Dates: start: 20100101

REACTIONS (3)
  - INFLUENZA [None]
  - WRONG TECHNIQUE IN DRUG USAGE PROCESS [None]
  - LARYNGITIS [None]
